FAERS Safety Report 7981295-4 (Version None)
Quarter: 2011Q4

REPORT INFORMATION
  Report Type: 
  Country: None (occurrence: None)
  Receive Date: 20111215
  Receipt Date: 20111129
  Transmission Date: 20120403
  Serious: No
  Sender: FDA-Public Use
  Company Number: US-PFIZER INC-2011303474

PATIENT
  Sex: Female
  Weight: 102.96 kg

DRUGS (4)
  1. VICODIN [Suspect]
     Dosage: UNK
  2. MORPHINE SULFATE [Suspect]
     Dosage: UNK
  3. CARISOPRODOL [Suspect]
     Dosage: UNK
  4. QUININE SULFATE [Suspect]
     Dosage: UNK

REACTIONS (1)
  - DRUG HYPERSENSITIVITY [None]
